FAERS Safety Report 8519014 (Version 2)
Quarter: 2014Q2

REPORT INFORMATION
  Report Type: Spontaneous
  Country: CN (occurrence: CN)
  Receive Date: 20120418
  Receipt Date: 20140407
  Transmission Date: 20141212
  Serious: Yes (Other)
  Sender: FDA-Public Use
  Company Number: CN-JNJFOC-20120402517

PATIENT
  Age: 7 Year
  Sex: Female

DRUGS (2)
  1. REMICADE [Suspect]
     Indication: PSORIATIC ARTHROPATHY
     Route: 042
     Dates: start: 201109
  2. REMICADE [Suspect]
     Indication: PSORIATIC ARTHROPATHY
     Dosage: DRUG AS 150MG  FOR 5 TIMES
     Route: 042
     Dates: end: 2012

REACTIONS (2)
  - Psoriasis [Recovered/Resolved]
  - Alopecia [Not Recovered/Not Resolved]
